FAERS Safety Report 7414354-5 (Version None)
Quarter: 2011Q2

REPORT INFORMATION
  Report Type: 
  Country: None (occurrence: None)
  Receive Date: 20110407
  Receipt Date: 20110328
  Transmission Date: 20111010
  Serious: Yes (Hospitalization)
  Sender: FDA-Public Use
  Company Number: DAV-AE-MTX-11-014

PATIENT
  Age: 71 Year
  Sex: Female

DRUGS (1)
  1. METHOTREXATE [Suspect]
     Indication: DERMATOMYOSITIS
     Dosage: IM
     Route: 030

REACTIONS (3)
  - EPSTEIN-BARR VIRUS INFECTION [None]
  - B-CELL LYMPHOMA [None]
  - DYSPEPSIA [None]
